FAERS Safety Report 9457922 (Version 1)
Quarter: 2013Q3

REPORT INFORMATION
  Report Type: Spontaneous
  Country: US (occurrence: None)
  Receive Date: 20130812
  Receipt Date: 20130812
  Transmission Date: 20140515
  Serious: Yes (Hospitalization)
  Sender: FDA-Public Use
  Company Number: None

PATIENT
  Age: 60 Year
  Sex: Male
  Weight: 63 kg

DRUGS (1)
  1. SULFAMETHOXAZOLE/TRIMETHOPRIM [Suspect]
     Dosage: MG  OTHER  PO
     Route: 048
     Dates: start: 20130714, end: 20130720

REACTIONS (3)
  - Hepatic enzyme increased [None]
  - Haemolysis [None]
  - Hyperkalaemia [None]
